FAERS Safety Report 8418187-2 (Version None)
Quarter: 2012Q2

REPORT INFORMATION
  Report Type: 
  Country: None (occurrence: None)
  Receive Date: 20120607
  Receipt Date: 20120529
  Transmission Date: 20120825
  Serious: Yes (Other)
  Sender: FDA-Public Use
  Company Number: CN-BAYER-2012-052452

PATIENT
  Age: 72 Year
  Sex: Male

DRUGS (3)
  1. NEXAVAR [Suspect]
     Dosage: UNK
     Dates: start: 20120101, end: 20120501
  2. NEXAVAR [Suspect]
     Dosage: UNK
     Dates: start: 20120101, end: 20120101
  3. NEXAVAR [Suspect]
     Indication: RENAL CELL CARCINOMA
     Dosage: UNK
     Dates: start: 20120101, end: 20120101

REACTIONS (5)
  - APHAGIA [None]
  - GASTRITIS [None]
  - DIARRHOEA [None]
  - VOMITING [None]
  - OESOPHAGITIS [None]
